FAERS Safety Report 4455024-5 (Version None)
Quarter: 2004Q3

REPORT INFORMATION
  Report Type: 
  Country: None (occurrence: None)
  Receive Date: 20040825
  Receipt Date: 20040520
  Transmission Date: 20050211
  Serious: No
  Sender: FDA-Public Use
  Company Number: 206693

PATIENT
  Age: 56 Year
  Sex: Male

DRUGS (3)
  1. RAPTIVA [Suspect]
     Indication: PSORIASIS
     Dosage: 0.6 ML, SINGLE, SUBCUTANEOUS;0.9 ML, 1/WEEK, SUBCUTANEOUS;1/WEEK, SUBCUTANEOUS
     Route: 058
     Dates: start: 20040201
  2. RAPTIVA [Suspect]
     Indication: PSORIASIS
     Dosage: 0.6 ML, SINGLE, SUBCUTANEOUS;0.9 ML, 1/WEEK, SUBCUTANEOUS;1/WEEK, SUBCUTANEOUS
     Route: 058
     Dates: start: 20040201
  3. RAPTIVA [Suspect]
     Indication: PSORIASIS
     Dosage: 0.6 ML, SINGLE, SUBCUTANEOUS;0.9 ML, 1/WEEK, SUBCUTANEOUS;1/WEEK, SUBCUTANEOUS
     Route: 058
     Dates: start: 20040518

REACTIONS (1)
  - INFLUENZA LIKE ILLNESS [None]
